FAERS Safety Report 5204515-8 (Version None)
Quarter: 2007Q1

REPORT INFORMATION
  Report Type: 
  Country: None (occurrence: None)
  Receive Date: 20070110
  Receipt Date: 20060421
  Transmission Date: 20070707
  Serious: No
  Sender: FDA-Public Use
  Company Number: US-BRISTOL-MYERS SQUIBB COMPANY-13354055

PATIENT
  Sex: Male

DRUGS (5)
  1. ABILIFY [Suspect]
     Dates: start: 20050701
  2. TRILEPTAL [Concomitant]
  3. CELEXA [Concomitant]
  4. ADDERALL 10 [Concomitant]
  5. SENOKOT [Concomitant]

REACTIONS (1)
  - DYSARTHRIA [None]
